FAERS Safety Report 6076308-3 (Version None)
Quarter: 2009Q1

REPORT INFORMATION
  Report Type: 
  Country: None (occurrence: None)
  Receive Date: 20090209
  Receipt Date: 20090127
  Transmission Date: 20090719
  Serious: Yes (Hospitalization)
  Sender: FDA-Public Use
  Company Number: 14590

PATIENT
  Age: 52 Year
  Sex: Female

DRUGS (5)
  1. MORPHINE SULFATE [Suspect]
     Indication: ABDOMINAL PAIN
     Dosage: 60MG TWICE DAILY ORAL
     Route: 048
     Dates: start: 20050101, end: 20080101
  2. DICYCLOMINE [Concomitant]
  3. DIAZEPAM [Concomitant]
  4. DEPO-ESTRADIOL [Concomitant]
  5. LORTAB [Concomitant]

REACTIONS (6)
  - CONDITION AGGRAVATED [None]
  - CONSTIPATION [None]
  - HEADACHE [None]
  - INTESTINAL OBSTRUCTION [None]
  - PRODUCT QUALITY ISSUE [None]
  - VOMITING [None]
